FAERS Safety Report 9847171 (Version 2)
Quarter: 2014Q1

REPORT INFORMATION
  Report Type: Spontaneous
  Country: NL (occurrence: NL)
  Receive Date: 20140127
  Receipt Date: 20140127
  Transmission Date: 20141002
  Serious: Yes (Life-Threatening, Other)
  Sender: FDA-Public Use
  Company Number: NL-UCBSA-107026

PATIENT
  Age: 20 Year
  Sex: Female
  Weight: 64 kg

DRUGS (1)
  1. XYZAL [Suspect]
     Indication: DERMATITIS
     Dosage: AT START 2/DAY, LATER 4/DAY
     Route: 048
     Dates: start: 20131111, end: 20131218

REACTIONS (5)
  - Anaphylactic shock [Recovered/Resolved]
  - Palpitations [Recovered/Resolved]
  - Convulsion [Recovered/Resolved]
  - Dizziness [Recovered/Resolved]
  - Intentional drug misuse [Recovered/Resolved]
